FAERS Safety Report 7484798-4 (Version None)
Quarter: 2011Q2

REPORT INFORMATION
  Report Type: 
  Country: None (occurrence: None)
  Receive Date: 20110517
  Receipt Date: 20091226
  Transmission Date: 20111010
  Serious: Yes (Other)
  Sender: FDA-Public Use
  Company Number: US-BAYER-2011-008084

PATIENT
  Age: 62 Year
  Sex: Male
  Weight: 126.98 kg

DRUGS (35)
  1. TRASYLOL [Suspect]
     Indication: CARDIAC OPERATION
     Dosage: 200 ML PUMP PRIME, UNK
     Route: 042
     Dates: start: 20050829, end: 20050829
  2. ACETYLSALICYLIC ACID SRT [Concomitant]
     Indication: HYPERTENSION
     Dosage: 325 MG, QD
     Route: 048
  3. ZOCOR [Concomitant]
     Indication: HYPERLIPIDAEMIA
     Dosage: 40 MG, QD
     Route: 048
  4. LASIX [Concomitant]
     Indication: PRODUCT USED FOR UNKNOWN INDICATION
     Dosage: 40 MG, PRN
  5. LORCET-HD [Concomitant]
     Indication: BACK PAIN
     Dosage: 1-2 TABLETS PRN Q4-6HR
     Route: 048
     Dates: start: 19890101
  6. PROCARDIA [Concomitant]
     Indication: ARRHYTHMIA
     Dosage: LONG TERM USE UNK
     Dates: start: 19850101
  7. CLONIDINE [Concomitant]
     Indication: HYPERTENSION
     Dosage: UNK
  8. VERSED [Concomitant]
     Indication: PRODUCT USED FOR UNKNOWN INDICATION
     Dosage: UNK
     Dates: start: 20050826
  9. LIDOCAINE [Concomitant]
     Indication: PRODUCT USED FOR UNKNOWN INDICATION
     Dosage: UNK
     Dates: start: 20050826
  10. MAGNESIUM SULFATE [Concomitant]
     Indication: PRODUCT USED FOR UNKNOWN INDICATION
     Dosage: 1 G, UNK
     Route: 042
     Dates: start: 20050826
  11. RED BLOOD CELLS, CONCENTRATED [Concomitant]
     Indication: PRODUCT USED FOR UNKNOWN INDICATION
     Dosage: 2 U, UNK
     Route: 042
     Dates: start: 20050829
  12. NORMOSOL [Concomitant]
     Dosage: 1600 ML, UNK
     Route: 042
     Dates: start: 20050826
  13. CEFAZOLIN [Concomitant]
     Indication: PROPHYLAXIS
     Dosage: 2 G, UNK
     Route: 042
     Dates: start: 20050829, end: 20050829
  14. MANNITOL [Concomitant]
     Indication: PRODUCT USED FOR UNKNOWN INDICATION
     Dosage: 25 G, UNK
     Route: 042
     Dates: start: 20050826
  15. DOXAZOSIN MESYLATE [Concomitant]
  16. TRASYLOL [Suspect]
     Dosage: UNK INFUSION RATE, UNK
     Route: 042
     Dates: start: 20050829, end: 20050829
  17. TRASYLOL [Suspect]
     Indication: CORONARY ARTERY BYPASS
     Dosage: UNK LOADING DOSE, UNK
     Route: 042
     Dates: start: 20050829, end: 20050829
  18. LOPRESSOR [Concomitant]
     Indication: HYPERTENSION
     Dosage: 25 MG, BID
     Route: 048
  19. LASIX [Concomitant]
     Dosage: 40 MG, UNK
     Route: 042
     Dates: start: 20050826
  20. ALBUMIN (HUMAN) [Concomitant]
     Indication: PRODUCT USED FOR UNKNOWN INDICATION
     Dosage: 50 ML, UNK
     Route: 042
     Dates: start: 20050826
  21. LOTREL [Concomitant]
     Indication: HYPERTENSION
     Dosage: 10/20 QD UNK
     Route: 048
  22. HEPARIN [Concomitant]
     Indication: PRODUCT USED FOR UNKNOWN INDICATION
     Dosage: 40000 U, UNK
     Route: 042
     Dates: start: 20050826
  23. KEFLEX [Concomitant]
     Indication: PRODUCT USED FOR UNKNOWN INDICATION
     Dosage: 500 MG, UNK
     Route: 048
     Dates: start: 20050902
  24. MORPHINE [Concomitant]
     Indication: PRODUCT USED FOR UNKNOWN INDICATION
     Dosage: UNK
     Dates: start: 20050826
  25. ACTOS [Concomitant]
     Indication: DIABETES MELLITUS
     Dosage: 30 MG, QD
     Dates: start: 19880101
  26. PAPAVERINE [PAPAVERINE] [Concomitant]
     Indication: PRODUCT USED FOR UNKNOWN INDICATION
     Dosage: 60 MG AND 2.5 MG IN 40 CC NORMAL SALINE IRRIGATION
     Dates: start: 20050826
  27. NEXIUM [Concomitant]
     Indication: GASTROOESOPHAGEAL REFLUX DISEASE
     Dosage: 40 MG, QD
     Route: 048
     Dates: start: 19900101, end: 20090101
  28. HUMULIN N [INSULIN HUMAN] [Concomitant]
     Indication: DIABETES MELLITUS
     Dosage: 40 U, OM
     Route: 058
     Dates: start: 19880101
  29. PLAVIX [Concomitant]
     Indication: PRODUCT USED FOR UNKNOWN INDICATION
     Dosage: 75 MG, QD
     Route: 048
  30. FENTANYL [Concomitant]
     Indication: PRODUCT USED FOR UNKNOWN INDICATION
     Dosage: UNK
     Dates: start: 20050826
  31. PROPOFOL [Concomitant]
     Indication: PRODUCT USED FOR UNKNOWN INDICATION
     Dosage: UNK
     Dates: start: 20050826
  32. NITROGLYCERIN [Concomitant]
     Indication: PRODUCT USED FOR UNKNOWN INDICATION
     Dosage: UNK
     Route: 042
     Dates: start: 20050826
  33. PROTAMINE SULFATE [Concomitant]
     Indication: PRODUCT USED FOR UNKNOWN INDICATION
     Dosage: 300 MG, UNK
     Dates: start: 20050826
  34. VERAPAMIL [Concomitant]
     Indication: PRODUCT USED FOR UNKNOWN INDICATION
     Dosage: 60 MG AND 2.5 MG IN 40 CC NORMAL SALINE IRRIGATION
     Route: 061
     Dates: start: 20050826
  35. AXID [Concomitant]
     Indication: DYSPEPSIA

REACTIONS (6)
  - RENAL FAILURE ACUTE [None]
  - ANXIETY [None]
  - RENAL FAILURE [None]
  - EMOTIONAL DISTRESS [None]
  - PAIN [None]
  - INJURY [None]
